FAERS Safety Report 16934163 (Version 4)
Quarter: 2025Q3

REPORT INFORMATION
  Report Type: Spontaneous
  Country: EU (occurrence: EU)
  Receive Date: 20191018
  Receipt Date: 20250705
  Transmission Date: 20251021
  Serious: Yes (Hospitalization, Other)
  Sender: AUROBINDO
  Company Number: None

PATIENT
  Age: 47 Year
  Sex: Female

DRUGS (13)
  1. IRINOTECAN [Suspect]
     Active Substance: IRINOTECAN
     Indication: Ductal adenocarcinoma of pancreas
     Route: 065
     Dates: start: 201902
  2. IRINOTECAN [Suspect]
     Active Substance: IRINOTECAN
     Route: 065
     Dates: start: 201904
  3. IRINOTECAN [Suspect]
     Active Substance: IRINOTECAN
     Route: 065
     Dates: start: 20190716
  4. OXALIPLATIN [Suspect]
     Active Substance: OXALIPLATIN
     Indication: Ductal adenocarcinoma of pancreas
     Route: 065
     Dates: start: 201902
  5. OXALIPLATIN [Suspect]
     Active Substance: OXALIPLATIN
     Route: 065
     Dates: start: 201904
  6. OXALIPLATIN [Suspect]
     Active Substance: OXALIPLATIN
     Route: 065
     Dates: start: 20190716
  7. LEUCOVORIN [Suspect]
     Active Substance: LEUCOVORIN\LEUCOVORIN CALCIUM
     Indication: Pancreatic carcinoma
     Route: 065
     Dates: start: 201902, end: 20190716
  8. FLUOROURACIL [Suspect]
     Active Substance: FLUOROURACIL
     Indication: Ductal adenocarcinoma of pancreas
     Route: 065
     Dates: start: 201902
  9. FLUOROURACIL [Suspect]
     Active Substance: FLUOROURACIL
     Route: 065
     Dates: start: 201904
  10. FLUOROURACIL [Suspect]
     Active Substance: FLUOROURACIL
     Route: 065
     Dates: start: 20190716
  11. LIPEGFILGRASTIM [Suspect]
     Active Substance: LIPEGFILGRASTIM
     Indication: Leukopenia
     Route: 065
     Dates: start: 201902
  12. LIPEGFILGRASTIM [Suspect]
     Active Substance: LIPEGFILGRASTIM
     Indication: Colony stimulating factor therapy
  13. ENOXAPARIN SODIUM [Concomitant]
     Active Substance: ENOXAPARIN SODIUM
     Indication: Thrombocytosis
     Route: 065

REACTIONS (5)
  - Acute coronary syndrome [Recovered/Resolved]
  - Coronary artery occlusion [Recovered/Resolved]
  - Hyperviscosity syndrome [Recovered/Resolved]
  - Myocardial infarction [Recovered/Resolved]
  - Leukocytosis [Recovered/Resolved]

NARRATIVE: CASE EVENT DATE: 20190301
